FAERS Safety Report 18118617 (Version 7)
Quarter: 2022Q1

REPORT INFORMATION
  Report Type: Spontaneous
  Country: US (occurrence: US)
  Receive Date: 20200806
  Receipt Date: 20220330
  Transmission Date: 20220424
  Serious: No
  Sender: FDA-Public Use
  Company Number: US-PFIZER INC-2020007413

PATIENT
  Age: 68 Year
  Sex: Female
  Weight: 150 kg

DRUGS (2)
  1. TOVIAZ [Suspect]
     Active Substance: FESOTERODINE FUMARATE
     Indication: Hypertonic bladder
     Dosage: 8 MG, 1X/DAY
     Route: 048
  2. TOVIAZ [Suspect]
     Active Substance: FESOTERODINE FUMARATE
     Dosage: UNK, CYCLIC (TAKE 3 THIS WEEK. MONDAY, WEDNESDAY AND FRIDAY)

REACTIONS (5)
  - Pain [Unknown]
  - Muscle spasms [Unknown]
  - Hypokinesia [Unknown]
  - Product dose omission issue [Unknown]
  - Intentional product misuse [Unknown]
